FAERS Safety Report 5745673-6 (Version None)
Quarter: 2008Q2

REPORT INFORMATION
  Report Type: 
  Country: None (occurrence: None)
  Receive Date: 20080521
  Receipt Date: 20080519
  Transmission Date: 20081010
  Serious: Yes (Other)
  Sender: FDA-Public Use
  Company Number: US-BOEHRINGER INGELHEIM GMBH, GERMANY-2008-BP-07875RO

PATIENT
  Age: 72 Year
  Sex: Female

DRUGS (12)
  1. METHOTREXATE [Suspect]
     Indication: DERMATOMYOSITIS
  2. METHOTREXATE [Suspect]
  3. CYCLOPHOSPHAMIDE [Concomitant]
     Indication: DIFFUSE LARGE B-CELL LYMPHOMA
  4. CYCLOPHOSPHAMIDE [Concomitant]
     Indication: EPSTEIN-BARR VIRAEMIA
  5. DOXORUBICIN HCL [Concomitant]
     Indication: DIFFUSE LARGE B-CELL LYMPHOMA
  6. DOXORUBICIN HCL [Concomitant]
     Indication: EPSTEIN-BARR VIRAEMIA
  7. VINCRISTINE [Concomitant]
     Indication: DIFFUSE LARGE B-CELL LYMPHOMA
  8. VINCRISTINE [Concomitant]
     Indication: EPSTEIN-BARR VIRAEMIA
  9. PREDNISONE TAB [Concomitant]
     Indication: DIFFUSE LARGE B-CELL LYMPHOMA
  10. PREDNISONE TAB [Concomitant]
     Indication: EPSTEIN-BARR VIRAEMIA
  11. RITUXIMAB [Concomitant]
     Indication: DIFFUSE LARGE B-CELL LYMPHOMA
  12. RITUXIMAB [Concomitant]
     Indication: EPSTEIN-BARR VIRAEMIA

REACTIONS (2)
  - DIFFUSE LARGE B-CELL LYMPHOMA [None]
  - EPSTEIN-BARR VIRAEMIA [None]
